FAERS Safety Report 24141349 (Version 2)
Quarter: 2024Q3

REPORT INFORMATION
  Report Type: Spontaneous
  Country: IN (occurrence: IN)
  Receive Date: 20240726
  Receipt Date: 20240731
  Transmission Date: 20241016
  Serious: Yes (Hospitalization)
  Sender: NOVARTIS
  Company Number: IN-SANDOZ-SDZ2023IN066909

PATIENT
  Sex: Female

DRUGS (7)
  1. TACROLIMUS [Suspect]
     Active Substance: TACROLIMUS
     Indication: Renal transplant
     Dosage: 0.5 MG (1/2-0-)
     Route: 065
  2. MYFORTIC [Suspect]
     Active Substance: MYCOPHENOLATE SODIUM
     Indication: Renal transplant
     Dosage: 720 MG, QD, (360 MG, BID)
     Route: 065
  3. CARVEDILOL [Concomitant]
     Active Substance: CARVEDILOL
     Indication: Product used for unknown indication
     Dosage: 12.5 MG, QD (6.25 MG, BID)
     Route: 065
  4. PREDNISOLONE [Concomitant]
     Active Substance: PREDNISOLONE
     Indication: Product used for unknown indication
     Dosage: 17.5 MG, QD
     Route: 065
  5. ZANOCIN [Concomitant]
     Indication: Product used for unknown indication
     Dosage: 400 MG, QD (200 MG, BID)
     Route: 065
  6. CANDID [Concomitant]
     Indication: Product used for unknown indication
     Dosage: 4 DRP, BID, (4 DROPS 2TIMES A DAY) (MOUTHWASH)
     Route: 065
  7. CALCIUM CARBONATE\CHOLECALCIFEROL [Concomitant]
     Active Substance: CALCIUM CARBONATE\CHOLECALCIFEROL
     Indication: Product used for unknown indication
     Dosage: 1000 MG, QD (500 MG, BID)
     Route: 065

REACTIONS (5)
  - Abscess limb [Unknown]
  - Escherichia urinary tract infection [Unknown]
  - Lymphadenopathy [Unknown]
  - Laboratory test abnormal [Unknown]
  - Abdominal discomfort [Unknown]
